FAERS Safety Report 22062342 (Version 1)
Quarter: 2023Q1

REPORT INFORMATION
  Report Type: Spontaneous
  Country: US (occurrence: None)
  Receive Date: 20230305
  Receipt Date: 20230305
  Transmission Date: 20230417
  Serious: No
  Sender: FDA-Public Use
  Company Number: 2023A037638

PATIENT
  Age: 83 Year
  Sex: Male

DRUGS (2)
  1. FARXIGA [Suspect]
     Active Substance: DAPAGLIFLOZIN PROPANEDIOL
     Route: 048
  2. LOSARTAN [Suspect]
     Active Substance: LOSARTAN

REACTIONS (2)
  - Blood creatine increased [Unknown]
  - Glomerular filtration rate decreased [Unknown]
